FAERS Safety Report 5483208-6 (Version None)
Quarter: 2007Q4

REPORT INFORMATION
  Report Type: 
  Country: None (occurrence: None)
  Receive Date: 20071009
  Receipt Date: 20071001
  Transmission Date: 20080405
  Serious: Yes (Hospitalization)
  Sender: FDA-Public Use
  Company Number: 2007SP019432

PATIENT
  Sex: Female

DRUGS (1)
  1. TEMODAL [Suspect]
     Indication: GLIOBLASTOMA
     Dosage: ONCE
     Dates: start: 20070122, end: 20070122

REACTIONS (5)
  - BRAIN OEDEMA [None]
  - DISTURBANCE IN ATTENTION [None]
  - LETHARGY [None]
  - NEOPLASM PROGRESSION [None]
  - SOMNOLENCE [None]
